FAERS Safety Report 22615876 (Version 1)
Quarter: 2023Q2

REPORT INFORMATION
  Report Type: Spontaneous
  Country: ES (occurrence: ES)
  Receive Date: 20230619
  Receipt Date: 20230619
  Transmission Date: 20230722
  Serious: Yes (Hospitalization)
  Sender: FDA-Public Use
  Company Number: None

PATIENT
  Age: 70 Year
  Sex: Male

DRUGS (8)
  1. OXALIPLATIN [Suspect]
     Active Substance: OXALIPLATIN
     Indication: Adenocarcinoma of colon
     Dosage: 143MG
     Route: 042
     Dates: start: 20230329, end: 20230329
  2. FLUOROURACIL [Suspect]
     Active Substance: FLUOROURACIL
     Indication: Adenocarcinoma of colon
     Dosage: 4032MG
     Route: 042
     Dates: start: 20230329, end: 20230331
  3. FLUOROURACIL [Suspect]
     Active Substance: FLUOROURACIL
     Dosage: 672MG
     Route: 042
     Dates: start: 20230329, end: 20230329
  4. Omeprazole TEVA-RIMAFAR 20 mg gastroresistant hard capsules EFG, 28 ca [Concomitant]
     Indication: Product used for unknown indication
     Route: 048
     Dates: start: 20121015
  5. Hydroferol 0.266 mg soft capsules, 10 capsules (PVC/PVDC-Aluminum Blis [Concomitant]
     Indication: Product used for unknown indication
     Dosage: 0.26MG
     Route: 048
     Dates: start: 20160516
  6. Telmisartan/hydrochlorothiazide TEVAGEN 40 MG/12.5 mg tablets EFG 28 t [Concomitant]
     Indication: Product used for unknown indication
     Route: 048
     Dates: start: 20120604
  7. LEUCOVORIN [Concomitant]
     Active Substance: LEUCOVORIN
     Indication: Product used for unknown indication
     Dosage: 672MG
     Route: 042
     Dates: start: 20230329, end: 20230329
  8. Sinemet plus 25 mg/100 mg tablets, 100 tablets [Concomitant]
     Indication: Product used for unknown indication
     Route: 048
     Dates: start: 20220708

REACTIONS (1)
  - Arteriospasm coronary [Recovered/Resolved]

NARRATIVE: CASE EVENT DATE: 20230331
